FAERS Safety Report 12257857 (Version 1)
Quarter: 2016Q2

REPORT INFORMATION
  Report Type: Spontaneous
  Country: US (occurrence: US)
  Receive Date: 20160412
  Receipt Date: 20160412
  Transmission Date: 20160815
  Serious: No
  Sender: FDA-Public Use
  Company Number: ADR-2015-01172

PATIENT
  Sex: Male

DRUGS (8)
  1. CLONIDINE. [Suspect]
     Active Substance: CLONIDINE
     Route: 037
  2. MARCAINE [Suspect]
     Active Substance: BUPIVACAINE HYDROCHLORIDE
     Route: 037
  3. PRIALT [Suspect]
     Active Substance: ZICONOTIDE ACETATE
     Route: 037
  4. COMPOUNDED BACLOFEN [Suspect]
     Active Substance: BACLOFEN
     Dosage: 263.94 MCG/DAY
     Route: 037
  5. CLONIDINE. [Suspect]
     Active Substance: CLONIDINE
     Dosage: 74.64MCG/DAY
     Route: 037
  6. PRIALT [Suspect]
     Active Substance: ZICONOTIDE ACETATE
     Dosage: 0.25961MCG/DAY
     Route: 037
  7. FENTANYL. [Suspect]
     Active Substance: FENTANYL
     Dosage: 7139 MCG/DAY
     Route: 037
  8. BACLOFEN. [Suspect]
     Active Substance: BACLOFEN
     Dosage: 168.74MCG/DAY
     Route: 037

REACTIONS (2)
  - Pain [Unknown]
  - Device power source issue [None]
